FAERS Safety Report 9800005 (Version 1)
Quarter: 2014Q1

REPORT INFORMATION
  Report Type: Spontaneous
  Country: US (occurrence: US)
  Receive Date: 20140106
  Receipt Date: 20140106
  Transmission Date: 20141002
  Serious: No
  Sender: FDA-Public Use
  Company Number: US-GILEAD-2010-0030833

PATIENT
  Age: 57 Year
  Sex: Female

DRUGS (17)
  1. LETAIRIS [Suspect]
     Indication: HIV INFECTION
     Route: 048
     Dates: start: 20100610
  2. TYLENOL PM EXTRA STR [Concomitant]
  3. KLONOPIN [Concomitant]
  4. TEMAZEPAM [Concomitant]
  5. POTASSIUM [Concomitant]
  6. VITAMIN D [Concomitant]
  7. BABY ASPIRIN [Concomitant]
  8. MULTIVITAMIN [Concomitant]
  9. FISH OIL [Concomitant]
  10. FUROSEMIDE [Concomitant]
  11. FOLIC ACID [Concomitant]
  12. ALTACE [Concomitant]
  13. ACTOPLUS MET [Concomitant]
  14. CRESTOR [Concomitant]
  15. TRICOR [Concomitant]
  16. VICODIN [Concomitant]
  17. MC CONTIN [Concomitant]

REACTIONS (2)
  - Oedema [Not Recovered/Not Resolved]
  - Fluid retention [Not Recovered/Not Resolved]
